FAERS Safety Report 4304645-9 (Version None)
Quarter: 2004Q1

REPORT INFORMATION
  Report Type: 
  Country: None (occurrence: None)
  Receive Date: 20040226
  Receipt Date: 20031107
  Transmission Date: 20041129
  Serious: No
  Sender: FDA-Public Use
  Company Number: US-GLAXOSMITHKLINE-A0438798A

PATIENT
  Age: 37 Year
  Sex: Female

DRUGS (2)
  1. WELLBUTRIN [Suspect]
     Indication: MOOD SWINGS
     Dosage: 150MG PER DAY
     Route: 048
     Dates: start: 20031001, end: 20031001
  2. ZOLOFT [Concomitant]

REACTIONS (6)
  - BEDRIDDEN [None]
  - DIZZINESS [None]
  - FEELING COLD [None]
  - NAUSEA [None]
  - VERTIGO [None]
  - VOMITING [None]
